FAERS Safety Report 10686883 (Version 1)
Quarter: 2015Q1

REPORT INFORMATION
  Report Type: Report from Study
  Country: NL (occurrence: NL)
  Receive Date: 20150102
  Receipt Date: 20150102
  Transmission Date: 20150720
  Serious: Yes (Death)
  Sender: FDA-Public Use
  Company Number: NL-AMGEN-NLDSL2014101987

PATIENT
  Age: 81 Year
  Sex: Female

DRUGS (1)
  1. NEULASTA [Suspect]
     Active Substance: PEGFILGRASTIM
     Indication: PROPHYLAXIS
     Dosage: 10 MG/ML WWSP 0,6ML, EVERY 3 WEEKS
     Route: 058
     Dates: start: 20141124, end: 20141230

REACTIONS (1)
  - Death [Fatal]

NARRATIVE: CASE EVENT DATE: 20141230
